FAERS Safety Report 9859023 (Version 1)
Quarter: 2014Q1

REPORT INFORMATION
  Report Type: Spontaneous
  Country: CO (occurrence: CO)
  Receive Date: 20140131
  Receipt Date: 20140131
  Transmission Date: 20141002
  Serious: Yes (Other)
  Sender: FDA-Public Use
  Company Number: CO-PFIZER INC-2014028457

PATIENT
  Age: 50 Year
  Sex: Male

DRUGS (1)
  1. CARDURAN [Suspect]
     Indication: PROSTATIC DISORDER
     Dosage: 4 MG, DAILY
     Route: 048
     Dates: start: 2012, end: 201310

REACTIONS (2)
  - Nephrolithiasis [Recovered/Resolved]
  - Nephrolithiasis [Recovered/Resolved]
